FAERS Safety Report 5306108-0 (Version None)
Quarter: 2007Q2

REPORT INFORMATION
  Report Type: 
  Country: None (occurrence: None)
  Receive Date: 20070424
  Receipt Date: 20070117
  Transmission Date: 20071010
  Serious: Yes (Death, Hospitalization)
  Sender: FDA-Public Use
  Company Number: US-BRISTOL-MYERS SQUIBB COMPANY-13646328

PATIENT
  Age: 57 Year
  Sex: Male
  Weight: 80 kg

DRUGS (7)
  1. CARBOPLATIN [Suspect]
     Indication: ADENOCARCINOMA
     Dates: start: 20060626, end: 20060626
  2. TAXOL [Concomitant]
     Indication: ADENOCARCINOMA
     Dates: start: 20060626, end: 20060626
  3. AVASTIN [Concomitant]
     Indication: ADENOCARCINOMA
     Dates: start: 20060626
  4. TOPROL-XL [Concomitant]
  5. NEURONTIN [Concomitant]
  6. FLUCONAZOLE [Concomitant]
  7. MORPHINE SULFATE [Concomitant]

REACTIONS (2)
  - NEUTROPENIA [None]
  - SEPSIS [None]
